FAERS Safety Report 13637947 (Version 5)
Quarter: 2017Q3

REPORT INFORMATION
  Report Type: Spontaneous
  Country: GR (occurrence: GR)
  Receive Date: 20170609
  Receipt Date: 20170928
  Transmission Date: 20171127
  Serious: Yes (Death, Hospitalization, Other)
  Sender: FDA-Public Use
  Company Number: ALCN2017GR003824

PATIENT
  Sex: Female

DRUGS (3)
  1. BETADINE [Concomitant]
     Active Substance: POVIDONE-IODINE
     Indication: POSTOPERATIVE CARE
     Route: 065
  2. BSS [Suspect]
     Active Substance: CALCIUM CHLORIDE\MAGNESIUM CHLORIDE\POTASSIUM CHLORIDE\SODIUM ACETATE\SODIUM CHLORIDE\SODIUM CITRATE
     Indication: PRODUCT USED FOR UNKNOWN INDICATION
     Dosage: UNK
     Route: 031
     Dates: start: 20100623, end: 20100623
  3. TETRACAINE. [Concomitant]
     Active Substance: TETRACAINE
     Indication: POSTOPERATIVE CARE
     Route: 065

REACTIONS (9)
  - Death [Fatal]
  - Endophthalmitis [Unknown]
  - Blindness unilateral [Unknown]
  - Eye oedema [Unknown]
  - Eye irritation [Unknown]
  - Eye inflammation [Unknown]
  - Ocular hyperaemia [Unknown]
  - Hypopyon [Unknown]
  - Eye pain [Unknown]
